FAERS Safety Report 20455258 (Version 2)
Quarter: 2022Q1

REPORT INFORMATION
  Report Type: Report from Study
  Country: CA (occurrence: CA)
  Receive Date: 20220210
  Receipt Date: 20220228
  Transmission Date: 20220423
  Serious: Yes (Other)
  Sender: FDA-Public Use
  Company Number: CA-TAKEDA-2021TUS055372

PATIENT
  Age: 46 Year
  Sex: Female

DRUGS (19)
  1. HUMAN IMMUNOGLOBULIN G [Suspect]
     Active Substance: HUMAN IMMUNOGLOBULIN G
     Indication: Infertility female
     Dosage: 18 GRAM, 1/WEEK
     Route: 065
     Dates: start: 20210901
  2. CORTEF [Concomitant]
     Active Substance: HYDROCORTISONE
     Dosage: 12.5 MILLIGRAM
     Route: 065
  3. PREDNISOLONE [Concomitant]
     Active Substance: PREDNISOLONE
     Dosage: 2.5 MILLIGRAM
     Route: 065
  4. FLORINEF ACETATE [Concomitant]
     Active Substance: FLUDROCORTISONE ACETATE
     Dosage: 0.05 MILLIGRAM
     Route: 065
  5. TIROSINT [Concomitant]
     Active Substance: LEVOTHYROXINE SODIUM
     Dosage: 100 MICROGRAM
     Route: 065
  6. GENOTROPIN [Concomitant]
     Active Substance: SOMATROPIN
     Dosage: 0.6 MILLIGRAM
     Route: 065
  7. TACROLIMUS [Concomitant]
     Active Substance: TACROLIMUS
     Dosage: 4 MILLIGRAM
     Route: 065
  8. VITAMIN B COMPLEX [Concomitant]
     Active Substance: CYANOCOBALAMIN\DEXPANTHENOL\NIACINAMIDE\PYRIDOXINE HYDROCHLORIDE\RIBOFLAVIN 5^-PHOSPHATE SODIUM\THIA
     Dosage: UNK
     Route: 065
  9. VITAMIN C [Concomitant]
     Active Substance: ASCORBIC ACID
     Dosage: 1000 MILLIGRAM
     Route: 065
  10. VITAMIN D [Concomitant]
     Active Substance: VITAMIN D NOS
     Dosage: 5000 INTERNATIONAL UNIT
     Route: 065
  11. VITAMIN E [Concomitant]
     Active Substance: .ALPHA.-TOCOPHEROL
     Dosage: 400 INTERNATIONAL UNIT
     Route: 065
  12. OMEGA 3 [Concomitant]
     Active Substance: CAPSAICIN
     Dosage: 2000 MILLIGRAM
     Route: 065
  13. MAGNESIUM BISGLYCINATE [Concomitant]
     Dosage: 200 MILLIGRAM
     Route: 065
  14. MAGNESIUM BISGLYCINATE [Concomitant]
     Dosage: 400 MILLIGRAM
     Route: 065
  15. CALCIUM CITRATE [Concomitant]
     Active Substance: CALCIUM CITRATE
     Dosage: 350 MILLIGRAM
     Route: 065
  16. ARGININE [Concomitant]
     Active Substance: ARGININE
     Dosage: 1500 MILLIGRAM
     Route: 065
  17. LEVOMEFOLATE CALCIUM [Concomitant]
     Active Substance: LEVOMEFOLATE CALCIUM
     Dosage: 1 MILLIGRAM
     Route: 065
  18. MELATONIN [Concomitant]
     Active Substance: MELATONIN
     Dosage: 3 MILLIGRAM
     Route: 065
  19. ENOXAPARIN [Concomitant]
     Active Substance: ENOXAPARIN
     Indication: Fertility increased
     Dosage: UNK
     Route: 065
     Dates: start: 20210903

REACTIONS (6)
  - Abortion spontaneous [Unknown]
  - Infusion site erythema [Unknown]
  - Infusion site pruritus [Unknown]
  - Infusion site swelling [Not Recovered/Not Resolved]
  - Off label use [Unknown]
  - In vitro fertilisation [Not Recovered/Not Resolved]

NARRATIVE: CASE EVENT DATE: 20210901
